FAERS Safety Report 15731157 (Version 1)
Quarter: 2018Q4

REPORT INFORMATION
  Report Type: Spontaneous
  Country: US (occurrence: US)
  Receive Date: 20181217
  Receipt Date: 20181217
  Transmission Date: 20190205
  Serious: Yes (Disabling)
  Sender: FDA-Public Use
  Company Number: None

PATIENT
  Age: 18 Year
  Sex: Male
  Weight: 68.26 kg

DRUGS (2)
  1. METHYLPHENIDATE ER 18 MG TAB [Suspect]
     Active Substance: METHYLPHENIDATE
     Indication: ATTENTION DEFICIT/HYPERACTIVITY DISORDER
     Dosage: ?          QUANTITY:1 TABLET(S);?
     Route: 048
     Dates: start: 20180915, end: 20181217
  2. B-VITAMIN COMPLEX [Concomitant]

REACTIONS (3)
  - Product substitution issue [None]
  - Dizziness [None]
  - Hallucination, auditory [None]

NARRATIVE: CASE EVENT DATE: 20181117
